FAERS Safety Report 17998474 (Version 1)
Quarter: 2020Q3

REPORT INFORMATION
  Report Type: Spontaneous
  Country: JP (occurrence: JP)
  Receive Date: 20200709
  Receipt Date: 20200709
  Transmission Date: 20201103
  Serious: Yes (Hospitalization)
  Sender: FDA-Public Use
  Company Number: JP-INDICUS PHARMA-000695

PATIENT
  Age: 80 Year
  Sex: Female
  Weight: 52.2 kg

DRUGS (5)
  1. DONEPEZIL/DONEPEZIL HYDROCHLORIDE [Suspect]
     Active Substance: DONEPEZIL HYDROCHLORIDE
     Indication: DEMENTIA ALZHEIMER^S TYPE
     Dosage: ON THE 16TH DAY FOLLOWED BY 5 MG/D DONEPEZIL ON THE 24TH DAY
  2. APIXABAN [Concomitant]
     Active Substance: APIXABAN
     Dosage: NASOGASTRIC TUBE
  3. AMANTADINE. [Interacting]
     Active Substance: AMANTADINE HYDROCHLORIDE
     Indication: ABULIA
  4. HEPARIN [Concomitant]
     Active Substance: HEPARIN SODIUM
  5. EDARAVONE [Concomitant]
     Active Substance: EDARAVONE

REACTIONS (12)
  - Musculoskeletal stiffness [Recovered/Resolved]
  - Tachycardia [Recovered/Resolved]
  - Overdose [Unknown]
  - Dyskinesia [Recovered/Resolved]
  - Paratonia [Recovered/Resolved]
  - Tremor [Recovered/Resolved]
  - Drug level increased [Recovered/Resolved]
  - Pyrexia [Recovered/Resolved]
  - Extrapyramidal disorder [Recovered/Resolved]
  - Drug interaction [Unknown]
  - Myoclonus [Recovered/Resolved]
  - Toxicity to various agents [Unknown]
